FAERS Safety Report 21977808 (Version 4)
Quarter: 2023Q2

REPORT INFORMATION
  Report Type: Spontaneous
  Country: US (occurrence: US)
  Receive Date: 20230210
  Receipt Date: 20230411
  Transmission Date: 20230722
  Serious: No
  Sender: FDA-Public Use
  Company Number: US-SA-SAC20230209000738

PATIENT
  Age: 69 Year
  Sex: Male

DRUGS (3)
  1. DUPIXENT [Suspect]
     Active Substance: DUPILUMAB
     Indication: Sinusitis
     Dosage: 300 MG, QOW
     Route: 058
     Dates: start: 20221107
  2. DUPIXENT [Suspect]
     Active Substance: DUPILUMAB
     Indication: Anosmia
  3. DUPIXENT [Suspect]
     Active Substance: DUPILUMAB
     Indication: Dysgeusia

REACTIONS (7)
  - Rash macular [Unknown]
  - Injection site reaction [Recovering/Resolving]
  - Injection site erythema [Unknown]
  - Sinus operation [Unknown]
  - Anticoagulant therapy [Recovered/Resolved]
  - Stent placement [Unknown]
  - Product use in unapproved indication [Unknown]

NARRATIVE: CASE EVENT DATE: 20221107
